FAERS Safety Report 8170709-5 (Version None)
Quarter: 2012Q1

REPORT INFORMATION
  Report Type: 
  Country: None (occurrence: None)
  Receive Date: 20120228
  Receipt Date: 20120221
  Transmission Date: 20120608
  Serious: Yes (Death)
  Sender: FDA-Public Use
  Company Number: US-ELI_LILLY_AND_COMPANY-US201201000727

PATIENT
  Sex: Female
  Weight: 90.4 kg

DRUGS (1)
  1. GEMZAR [Suspect]
     Indication: PANCREATIC CARCINOMA
     Dosage: 1380 MG, OTHER
     Route: 042
     Dates: start: 20110922

REACTIONS (1)
  - NEOPLASM PROGRESSION [None]
